FAERS Safety Report 15904472 (Version 2)
Quarter: 2019Q1

REPORT INFORMATION
  Report Type: Spontaneous
  Country: SE (occurrence: SE)
  Receive Date: 20190204
  Receipt Date: 20190208
  Transmission Date: 20190417
  Serious: Yes (Life-Threatening, Hospitalization)
  Sender: FDA-Public Use
  Company Number: SE-ACCORD-105350

PATIENT
  Age: 77 Year
  Sex: Male

DRUGS (2)
  1. OBINUTUZUMAB. [Suspect]
     Active Substance: OBINUTUZUMAB
     Indication: LYMPHOMA
     Dosage: UNKNOWN FREQ.
     Route: 042
  2. BENDAMUSTINE/BENDAMUSTINE HYDROCHLORIDE [Suspect]
     Active Substance: BENDAMUSTINE HYDROCHLORIDE
     Indication: LYMPHOMA
     Dosage: CYCLIC
     Route: 042

REACTIONS (1)
  - Streptococcal infection [Recovered/Resolved]

NARRATIVE: CASE EVENT DATE: 20180425
